FAERS Safety Report 20586799 (Version 1)
Quarter: 2022Q1

REPORT INFORMATION
  Report Type: Spontaneous
  Country: CN (occurrence: CN)
  Receive Date: 20220314
  Receipt Date: 20220314
  Transmission Date: 20220424
  Serious: Yes (Other)
  Sender: FDA-Public Use
  Company Number: CN-BAXTER-2022BAX005318

PATIENT
  Age: 60 Year
  Sex: Male
  Weight: 57.7 kg

DRUGS (4)
  1. CYCLOPHOSPHAMIDE [Suspect]
     Active Substance: CYCLOPHOSPHAMIDE
     Indication: Nephrotic syndrome
     Route: 041
     Dates: start: 20220224, end: 20220224
  2. SODIUM CHLORIDE [Suspect]
     Active Substance: SODIUM CHLORIDE
     Indication: Medication dilution
     Dosage: CYCLOPHOSPHAMIDE 0.2 G + SODIUM CHLORIDE 100 ML
     Route: 041
     Dates: start: 20220224, end: 20220224
  3. SODIUM CHLORIDE [Suspect]
     Active Substance: SODIUM CHLORIDE
     Dosage: OMEPRAZOLE SODIUM 60 MG + SODIUM CHLORIDE 100 ML
     Route: 041
     Dates: start: 20220224, end: 20220224
  4. OMEPRAZOLE SODIUM [Suspect]
     Active Substance: OMEPRAZOLE SODIUM
     Indication: Prophylaxis
     Route: 041
     Dates: start: 20220224, end: 20220224

REACTIONS (3)
  - Wheezing [Recovering/Resolving]
  - Tachypnoea [Recovering/Resolving]
  - Pruritus [Recovering/Resolving]

NARRATIVE: CASE EVENT DATE: 20220224
